FAERS Safety Report 9863498 (Version 2)
Quarter: 2014Q1

REPORT INFORMATION
  Report Type: Spontaneous
  Country: BE (occurrence: BE)
  Receive Date: 20140203
  Receipt Date: 20140224
  Transmission Date: 20141002
  Serious: Yes (Life-Threatening, Hospitalization, Disabling, Other)
  Sender: FDA-Public Use
  Company Number: BE-UCBSA-110770

PATIENT
  Age: 56 Year
  Sex: Male
  Weight: 89 kg

DRUGS (4)
  1. CERTOLIZUMAB PEGOL [Suspect]
     Indication: RHEUMATOID ARTHRITIS
     Dates: start: 20130818, end: 20131226
  2. METHOTREXATE [Suspect]
     Indication: RHEUMATOID ARTHRITIS
     Route: 048
     Dates: start: 20120426, end: 20131226
  3. ORENCIA [Concomitant]
  4. ROACTEMRA [Concomitant]

REACTIONS (2)
  - Bacterial infection [Unknown]
  - Staphylococcal infection [Not Recovered/Not Resolved]
